FAERS Safety Report 25736140 (Version 1)
Quarter: 2025Q3

REPORT INFORMATION
  Report Type: Spontaneous
  Country: US (occurrence: US)
  Receive Date: 20250828
  Receipt Date: 20250828
  Transmission Date: 20251021
  Serious: No
  Sender: SANOFI AVENTIS
  Company Number: US-SANOFI-02630538

PATIENT
  Age: 59 Year
  Sex: Female

DRUGS (3)
  1. LANTUS [Suspect]
     Active Substance: INSULIN GLARGINE
     Indication: Diabetes mellitus
     Dosage: 30 IU, QD
  2. LANTUS [Suspect]
     Active Substance: INSULIN GLARGINE
     Dosage: 24 UNITS IN THE MORNING AND 24 UNITS IN THE EVENING
  3. LANTUS [Suspect]
     Active Substance: INSULIN GLARGINE
     Dosage: 24 UNITS IN THE MORNING AND 18 UNITS IN THE EVENING

REACTIONS (4)
  - Blood glucose increased [Unknown]
  - Blood glucose decreased [Unknown]
  - Off label use [Unknown]
  - Product storage error [Unknown]
